FAERS Safety Report 8902311 (Version 1)
Quarter: 2012Q4

REPORT INFORMATION
  Report Type: 
  Country: US (occurrence: US)
  Receive Date: 20121113
  Receipt Date: 20121113
  Transmission Date: 20130627
  Serious: Yes (Other)
  Sender: FDA-Public Use
  Company Number: PHHY2012US103021

PATIENT
  Age: 31 Year
  Sex: Female

DRUGS (6)
  1. TRILEPTAL [Suspect]
     Indication: EPILEPSY
     Dosage: 1500 UKN, UNK
     Dates: end: 20110818
  2. TRILEPTAL [Suspect]
     Dosage: 1650 UKN, UNK
     Dates: start: 20110818, end: 20111024
  3. TRILEPTAL [Suspect]
     Dosage: 1800 UKN, UNK
     Dates: start: 20111024
  4. TRILEPTAL [Suspect]
     Dosage: 2100 UKN, UNK
  5. KEPPRA [Suspect]
     Indication: EPILEPSY
     Dosage: 3000 UKN, UNK
     Dates: end: 20111024
  6. KEPPRA [Suspect]
     Dosage: 3500 UKN, UNK
     Dates: start: 20111024

REACTIONS (2)
  - Oligohydramnios [Unknown]
  - Exposure during pregnancy [Unknown]
